FAERS Safety Report 18127269 (Version 2)
Quarter: 2021Q1

REPORT INFORMATION
  Report Type: Other
  Country: CA (occurrence: CA)
  Receive Date: 20200810
  Receipt Date: 20210129
  Transmission Date: 20210419
  Serious: Yes (Other)
  Sender: FDA-Public Use
  Company Number: CA-ROCHE-2654500

PATIENT
  Age: 65 Year
  Sex: Male

DRUGS (5)
  1. EYLEA [Concomitant]
     Active Substance: AFLIBERCEPT
     Indication: AGE-RELATED MACULAR DEGENERATION
     Route: 065
     Dates: start: 20160224
  2. BEOVU [Suspect]
     Active Substance: BROLUCIZUMAB-DBLL
     Indication: PRODUCT USED FOR UNKNOWN INDICATION
     Dosage: 6 MG(0.005 ML)
     Route: 065
  3. AVASTIN [Concomitant]
     Active Substance: BEVACIZUMAB
     Indication: AGE-RELATED MACULAR DEGENERATION
     Dosage: UNK (RIGHT EYE Q/4 WEEKS)
     Route: 065
     Dates: start: 20140110, end: 20160221
  4. AVASTIN [Concomitant]
     Active Substance: BEVACIZUMAB
     Dosage: UNK ( 2 WEEKS INTERVAL FROM EYLEA)
     Route: 065
     Dates: start: 20171219
  5. LUCENTIS [Suspect]
     Active Substance: RANIBIZUMAB
     Indication: AGE-RELATED MACULAR DEGENERATION
     Dosage: UNK (2 WEEKS AFTER EYLEA)
     Route: 065
     Dates: start: 20181129, end: 20190528

REACTIONS (2)
  - Retinal oedema [Unknown]
  - Therapy non-responder [Unknown]
